FAERS Safety Report 6083722-9 (Version None)
Quarter: 2009Q1

REPORT INFORMATION
  Report Type: 
  Country: None (occurrence: None)
  Receive Date: 20090217
  Receipt Date: 20090204
  Transmission Date: 20090719
  Serious: Yes (Other)
  Sender: FDA-Public Use
  Company Number: 166437

PATIENT
  Age: 56 Year
  Sex: Female
  Weight: 80 kg

DRUGS (12)
  1. PROPOFOL [Suspect]
     Indication: INDUCTION OF ANAESTHESIA
     Dosage: 2 MG/KG
  2. (BISOPROLOL) [Suspect]
     Indication: DRUG USE FOR UNKNOWN INDICATION
  3. LOSARTAN [Concomitant]
  4. ESOMEPRAZOLE MAGNESIUM [Concomitant]
  5. CHLORTHALIDONE [Concomitant]
  6. OXCARBAZEPINE [Concomitant]
  7. (SIMVASTATIN) [Concomitant]
     Indication: DRUG USE FOR UNKNOWN INDICATION
  8. SERTRALINE [Concomitant]
  9. METFORMIN [Concomitant]
  10. EZETIMIBE [Concomitant]
  11. (OXYGEN) [Concomitant]
  12. SEVOFLURANE [Concomitant]

REACTIONS (3)
  - BLOOD PRESSURE SYSTOLIC INCREASED [None]
  - BRADYCARDIA [None]
  - DRUG INTERACTION [None]
